FAERS Safety Report 4663070-1 (Version None)
Quarter: 2005Q2

REPORT INFORMATION
  Report Type: 
  Country: None (occurrence: None)
  Receive Date: 20050506
  Receipt Date: 20040602
  Transmission Date: 20051028
  Serious: No
  Sender: FDA-Public Use
  Company Number: 2004UW09307

PATIENT
  Age: 78 Year
  Sex: Male
  Weight: 88.4514 kg

DRUGS (9)
  1. PRILOSEC [Suspect]
     Indication: GASTROOESOPHAGEAL REFLUX DISEASE
     Dosage: 20 MG DAILY PO
     Route: 048
     Dates: start: 19820101
  2. NEXIUM [Suspect]
  3. PEPCID [Suspect]
  4. PREVACID [Suspect]
  5. PROTONIX [Suspect]
  6. ACIPHEX [Suspect]
  7. ZANTAC [Suspect]
  8. ANTIBIOTICS [Concomitant]
  9. VITAMINS [Concomitant]

REACTIONS (1)
  - IDIOPATHIC THROMBOCYTOPENIC PURPURA [None]
